FAERS Safety Report 16068260 (Version 1)
Quarter: 2019Q1

REPORT INFORMATION
  Report Type: Other
  Country: TH (occurrence: TH)
  Receive Date: 20190313
  Receipt Date: 20190313
  Transmission Date: 20190418
  Serious: Yes (Death)
  Sender: FDA-Public Use
  Company Number: TH-B. BRAUN MEDICAL INC.-2063942

PATIENT
  Age: 50 Year
  Sex: Female

DRUGS (6)
  1. DESFLURANE. [Concomitant]
     Active Substance: DESFLURANE
  2. CISATRACURIUM. [Concomitant]
     Active Substance: CISATRACURIUM
  3. LIDOCAINE. [Concomitant]
     Active Substance: LIDOCAINE
  4. FENTANYL. [Concomitant]
     Active Substance: FENTANYL
  5. CEFAZOLIN FOR INJECTION USP AND DEXTROSE INJECTION USP 0264-3103-11 (N [Suspect]
     Active Substance: CEFAZOLIN
  6. PROPOFOL. [Concomitant]
     Active Substance: PROPOFOL

REACTIONS (4)
  - Hypertensive crisis [None]
  - Metabolic acidosis [None]
  - Brain oedema [None]
  - Face oedema [None]
